FAERS Safety Report 10552570 (Version 2)
Quarter: 2015Q1

REPORT INFORMATION
  Report Type: Spontaneous
  Country: US (occurrence: US)
  Receive Date: 20141029
  Receipt Date: 20150227
  Transmission Date: 20150720
  Serious: Yes (Death, Hospitalization, Other)
  Sender: FDA-Public Use
  Company Number: US-PFIZER INC-2014293188

PATIENT
  Age: 63 Year
  Sex: Female

DRUGS (7)
  1. SILDENAFIL CITRATE. [Suspect]
     Active Substance: SILDENAFIL CITRATE
     Indication: PULMONARY HYPERTENSION
     Dosage: 20 MG, 3X/DAY
  2. LACTULOSE. [Concomitant]
     Active Substance: LACTULOSE
     Dosage: UNK 4 TIMES A DAY
  3. SPIRONOLACTONE. [Concomitant]
     Active Substance: SPIRONOLACTONE
     Indication: DIURETIC THERAPY
     Dosage: 200 MG, DAILY
  4. LASIX [Concomitant]
     Active Substance: FUROSEMIDE
     Dosage: 40 MG IN THE AM, THEN HALF OF IT, 20 MG IN THE EVENING
  5. METHADONE [Concomitant]
     Active Substance: METHADONE HYDROCHLORIDE
     Dosage: 25 MG, DAILY
  6. INSULIN HUMALOG PEN [Concomitant]
     Dosage: UNK
  7. LEVOTHYROXINE [Concomitant]
     Active Substance: LEVOTHYROXINE
     Indication: THYROID DISORDER
     Dosage: UNK

REACTIONS (8)
  - Fall [Unknown]
  - Haemorrhage [Unknown]
  - Hepatitis C [Fatal]
  - Hepatic cirrhosis [Fatal]
  - Skin atrophy [Unknown]
  - Drug dose omission [Unknown]
  - Cardio-respiratory arrest [Fatal]
  - Skin injury [Unknown]

NARRATIVE: CASE EVENT DATE: 20140930
